FAERS Safety Report 8434932-4 (Version None)
Quarter: 2012Q2

REPORT INFORMATION
  Report Type: 
  Country: None (occurrence: None)
  Receive Date: 20120614
  Receipt Date: 20120608
  Transmission Date: 20120825
  Serious: No
  Sender: FDA-Public Use
  Company Number: US-PFIZER INC-2012138773

PATIENT
  Sex: Male
  Weight: 70.295 kg

DRUGS (3)
  1. CYMBALTA [Concomitant]
     Indication: DEPRESSION
     Dosage: 30 MG,DAILY
  2. LEXAPRO [Concomitant]
     Indication: DEPRESSION
     Dosage: 20 MG, 2X/DAY
  3. SOMAVERT [Suspect]
     Indication: ACROMEGALY
     Dosage: 1.5 CC, DAILY
     Dates: start: 20120509, end: 20120603

REACTIONS (3)
  - RASH [None]
  - DECREASED APPETITE [None]
  - BLOOD GROWTH HORMONE INCREASED [None]
